FAERS Safety Report 26120969 (Version 1)
Quarter: 2025Q4

REPORT INFORMATION
  Report Type: Spontaneous
  Country: BR (occurrence: BR)
  Receive Date: 20251204
  Receipt Date: 20251204
  Transmission Date: 20260117
  Serious: Yes (Other)
  Sender: JOHNSON AND JOHNSON
  Company Number: BR-JNJFOC-20251175950

PATIENT
  Sex: Female
  Weight: 83 kg

DRUGS (1)
  1. STELARA [Suspect]
     Active Substance: USTEKINUMAB
     Indication: Crohn^s disease
     Route: 058

REACTIONS (7)
  - Haematochezia [Unknown]
  - Ileostomy [Unknown]
  - Headache [Unknown]
  - Asthenia [Unknown]
  - Pain [Unknown]
  - Bedridden [Unknown]
  - Muscle spasms [Unknown]
